FAERS Safety Report 8481129-8 (Version None)
Quarter: 2012Q3

REPORT INFORMATION
  Report Type: 
  Country: None (occurrence: None)
  Receive Date: 20120702
  Receipt Date: 20120626
  Transmission Date: 20120928
  Serious: Yes (Hospitalization)
  Sender: FDA-Public Use
  Company Number: PHHY2012VE055879

PATIENT
  Sex: Male

DRUGS (2)
  1. TRAMADOL HCL [Concomitant]
     Indication: PAIN
  2. ZOLEDRONOC ACID [Suspect]
     Indication: OSTEOPOROSIS
     Dosage: 5 MG, ONCE A YEAR
     Route: 042
     Dates: start: 20110830

REACTIONS (2)
  - HYPOTENSION [None]
  - CEREBROVASCULAR ACCIDENT [None]
